FAERS Safety Report 5412380-9 (Version None)
Quarter: 2007Q3

REPORT INFORMATION
  Report Type: 
  Country: None (occurrence: None)
  Receive Date: 20070713
  Receipt Date: 20070419
  Transmission Date: 20080115
  Serious: No
  Sender: FDA-Public Use
  Company Number: 2007SP001449

PATIENT
  Age: 58 Year
  Sex: Female
  Weight: 57.1532 kg

DRUGS (2)
  1. LUNESTA [Suspect]
     Indication: SLEEP DISORDER
     Dosage: .5 MG;PRN;ORAL
     Route: 048
  2. IBANDRONATE SODIUM [Concomitant]

REACTIONS (1)
  - DYSGEUSIA [None]
